FAERS Safety Report 19899801 (Version 1)
Quarter: 2021Q3

REPORT INFORMATION
  Report Type: Spontaneous
  Country: US (occurrence: US)
  Receive Date: 20210930
  Receipt Date: 20210930
  Transmission Date: 20211014
  Serious: Yes (Other)
  Sender: FDA-Public Use
  Company Number: None

PATIENT
  Age: 68 Year
  Sex: Male

DRUGS (1)
  1. CABOMETYX [Suspect]
     Active Substance: CABOZANTINIB S-MALATE
     Indication: RENAL CANCER METASTATIC
     Route: 048
     Dates: start: 20210520, end: 20210929

REACTIONS (3)
  - Hepatic enzyme increased [None]
  - Therapy interrupted [None]
  - Gastrointestinal disorder [None]

NARRATIVE: CASE EVENT DATE: 20210929
